FAERS Safety Report 18630176 (Version 1)
Quarter: 2020Q4

REPORT INFORMATION
  Report Type: Spontaneous
  Country: US (occurrence: US)
  Receive Date: 20201217
  Receipt Date: 20201217
  Transmission Date: 20210114
  Serious: No
  Sender: FDA-Public Use
  Company Number: US-PERRIGO-19US014423

PATIENT
  Age: 86 Year
  Sex: Female
  Weight: 82.99 kg

DRUGS (1)
  1. BACITRACIN. [Suspect]
     Active Substance: BACITRACIN
     Indication: EYE DISORDER
     Dosage: SMALL AMOUNT, UP TO 3 TIMES DAILY
     Route: 047
     Dates: start: 201906, end: 201906

REACTIONS (1)
  - Ocular hyperaemia [Recovered/Resolved]

NARRATIVE: CASE EVENT DATE: 201906
